FAERS Safety Report 23951609 (Version 1)
Quarter: 2024Q2

REPORT INFORMATION
  Report Type: Spontaneous
  Country: DE (occurrence: DE)
  Receive Date: 20240607
  Receipt Date: 20240607
  Transmission Date: 20240716
  Serious: Yes (Hospitalization)
  Sender: FDA-Public Use
  Company Number: None

PATIENT
  Age: 36 Year
  Sex: Female
  Weight: 51.5 kg

DRUGS (9)
  1. FULVESTRANT [Suspect]
     Active Substance: FULVESTRANT
     Indication: Breast cancer metastatic
     Dosage: 500 MG, Q4W??START DATE: 16-NOV-2020
     Route: 030
  2. LETROZOLE [Suspect]
     Active Substance: LETROZOLE
     Indication: Breast cancer metastatic
     Dosage: 2.5 MG, QD (END DATE: 15 NOV 2020)??START DATE: 29-MAY-2020
     Route: 048
     Dates: end: 20201115
  3. MORPHINE [Suspect]
     Active Substance: MORPHINE
     Indication: Product used for unknown indication
     Dosage: 20 MG
     Route: 048
  4. KISQALI [Suspect]
     Active Substance: RIBOCICLIB
     Indication: Breast cancer metastatic
     Dosage: 29-MAY-2020?400 MG, QD (SCHEME 21 DAYS INTAKE, 7 DAYS BREAK)
     Route: 048
     Dates: end: 20200611
  5. KISQALI [Suspect]
     Active Substance: RIBOCICLIB
     Dosage: 600 MG, QD (SCHEME 21 DAYS INTAKE, 7 DAYS PAUSE)
     Route: 048
     Dates: start: 20200612, end: 20201116
  6. ZOLEDRONIC ACID [Suspect]
     Active Substance: ZOLEDRONIC ACID
     Indication: Product used for unknown indication
     Dosage: UNK (4MG/5 ML)
  7. ZOMETA [Suspect]
     Active Substance: ZOLEDRONIC ACID
     Indication: Product used for unknown indication
     Dosage: UNK
     Dates: end: 20200921
  8. METAMIZOLE SODIUM [Suspect]
     Active Substance: METAMIZOLE SODIUM
     Indication: Product used for unknown indication
     Dosage: 500 MG
     Route: 048
  9. MORPHINE [Suspect]
     Active Substance: MORPHINE
     Indication: Product used for unknown indication
     Dosage: 10 MG

REACTIONS (87)
  - Carpal tunnel syndrome [Recovered/Resolved]
  - Chest pain [Unknown]
  - Mucosal dryness [Unknown]
  - Alopecia [Unknown]
  - Dry eye [Unknown]
  - Back pain [Unknown]
  - Skin exfoliation [Unknown]
  - Chromaturia [Unknown]
  - Nervousness [Unknown]
  - Asthenia [Unknown]
  - Coordination abnormal [Unknown]
  - Pollakiuria [Unknown]
  - Sensory disturbance [Unknown]
  - Abdominal discomfort [Unknown]
  - Rhinorrhoea [Unknown]
  - Feeling abnormal [Unknown]
  - Weight decreased [Unknown]
  - Somnolence [Unknown]
  - Lymphadenopathy [Unknown]
  - Pain in extremity [Unknown]
  - Oropharyngeal pain [Unknown]
  - Peripheral swelling [Unknown]
  - Joint swelling [Unknown]
  - Irritability [Unknown]
  - Muscle spasms [Unknown]
  - Nausea [Unknown]
  - Lacrimation increased [Unknown]
  - Pruritus [Unknown]
  - Eye irritation [Unknown]
  - Bone pain [Unknown]
  - Thirst [Unknown]
  - Decreased appetite [Unknown]
  - Chills [Unknown]
  - Diarrhoea [Unknown]
  - Abdominal pain upper [Unknown]
  - Constipation [Unknown]
  - Depression [Unknown]
  - Chest discomfort [Unknown]
  - Hyperhidrosis [Unknown]
  - Malaise [Unknown]
  - Dry mouth [Unknown]
  - Muscle tightness [Unknown]
  - Urticaria [Unknown]
  - Abdominal pain [Unknown]
  - Balance disorder [Not Recovered/Not Resolved]
  - Gastrointestinal disorder [Unknown]
  - Influenza like illness [Unknown]
  - Hyperaesthesia [Unknown]
  - Gait disturbance [Not Recovered/Not Resolved]
  - Injection site pain [Unknown]
  - Feeling hot [Unknown]
  - Headache [Unknown]
  - Dyspnoea [Unknown]
  - Arthralgia [Unknown]
  - Nerve injury [Unknown]
  - Pain [Unknown]
  - Feeling cold [Unknown]
  - Skin reaction [Unknown]
  - Bronchospasm [Unknown]
  - Photophobia [Unknown]
  - Hypersensitivity [Unknown]
  - Erythema [Unknown]
  - Taste disorder [Unknown]
  - Tremor [Unknown]
  - Vision blurred [Unknown]
  - Sleep disorder [Unknown]
  - Hypoaesthesia [Not Recovered/Not Resolved]
  - Ocular hyperaemia [Unknown]
  - Hot flush [Unknown]
  - Rash [Unknown]
  - Vertigo [Unknown]
  - Conjunctivitis [Unknown]
  - Injection site inflammation [Unknown]
  - Movement disorder [Not Recovered/Not Resolved]
  - Sedation [Unknown]
  - Muscle twitching [Unknown]
  - Dyspepsia [Unknown]
  - Anxiety [Unknown]
  - Decreased activity [Unknown]
  - Myalgia [Unknown]
  - Dizziness [Unknown]
  - Affective disorder [Unknown]
  - Respiratory rate decreased [Unknown]
  - Oedema peripheral [Unknown]
  - Fatigue [Unknown]
  - Cough [Unknown]
  - General physical health deterioration [Not Recovered/Not Resolved]

NARRATIVE: CASE EVENT DATE: 20200501
